APPROVED DRUG PRODUCT: MANNITOL 10%
Active Ingredient: MANNITOL
Strength: 10GM/100ML
Dosage Form/Route: INJECTABLE;INJECTION
Application: N016472 | Product #002
Applicant: MILES LABORATORIES INC
Approved: Approved Prior to Jan 1, 1982 | RLD: No | RS: No | Type: DISCN